FAERS Safety Report 11067931 (Version 1)
Quarter: 2015Q2

REPORT INFORMATION
  Report Type: Spontaneous
  Country: IT (occurrence: IT)
  Receive Date: 20150427
  Receipt Date: 20150427
  Transmission Date: 20150821
  Serious: Yes (Other)
  Sender: FDA-Public Use
  Company Number: IT-TEVA-557774ACC

PATIENT
  Age: 5 Year
  Sex: Female
  Weight: 17 kg

DRUGS (5)
  1. ETOPOSIDE. [Suspect]
     Active Substance: ETOPOSIDE
     Indication: ACUTE MYELOID LEUKAEMIA
     Dosage: 100 MG/M2 DAILY; 100 MG/M2 DAILY
     Route: 042
     Dates: start: 20150130, end: 20150203
  2. TEICOPLANIN [Suspect]
     Active Substance: TEICOPLANIN
     Indication: PYREXIA
     Dosage: 10 MILLIGRAM DAILY; 10 MG DAILY
     Route: 042
     Dates: start: 20150205, end: 20150205
  3. ACICLOVIR [Concomitant]
     Active Substance: ACYCLOVIR
     Indication: PNEUMONIA
     Dosage: 350 MG
     Route: 042
     Dates: start: 20150127
  4. CYTARABINE. [Suspect]
     Active Substance: CYTARABINE
     Indication: ACUTE MYELOID LEUKAEMIA
     Dosage: 200 MG/M2 DAILY; 200 MG/M2 DAILY
     Route: 042
     Dates: start: 20150130, end: 20150205
  5. CLARITHROMYCIN. [Concomitant]
     Active Substance: CLARITHROMYCIN
     Indication: PNEUMONIA
     Dosage: 250 MG
     Route: 042
     Dates: start: 20150122, end: 20150203

REACTIONS (4)
  - Hyperaemia [Recovered/Resolved]
  - Rash [Recovered/Resolved]
  - Skin exfoliation [Recovered/Resolved]
  - Erythema [Recovered/Resolved]

NARRATIVE: CASE EVENT DATE: 20150205
